FAERS Safety Report 4946516-0 (Version None)
Quarter: 2006Q1

REPORT INFORMATION
  Report Type: 
  Country: None (occurrence: None)
  Receive Date: 20060313
  Receipt Date: 20060301
  Transmission Date: 20060701
  Serious: No
  Sender: FDA-Public Use
  Company Number: 222678

PATIENT
  Age: 13 Year
  Sex: Male
  Weight: 42.1 kg

DRUGS (1)
  1. NUTROPIN [Suspect]
     Indication: ACUTE LYMPHOCYTIC LEUKAEMIA
     Dosage: 2.2 MG QID SUBCUTANEOUS
     Route: 058
     Dates: start: 20020830, end: 20060130

REACTIONS (1)
  - NEUROFIBROMA [None]
